APPROVED DRUG PRODUCT: PREDNISONE INTENSOL
Active Ingredient: PREDNISONE
Strength: 5MG/ML
Dosage Form/Route: SOLUTION;ORAL
Application: A088810 | Product #001
Applicant: HIKMA PHARMACEUTICALS USA INC
Approved: Feb 20, 1985 | RLD: Yes | RS: Yes | Type: RX